FAERS Safety Report 21815619 (Version 1)
Quarter: 2023Q1

REPORT INFORMATION
  Report Type: Spontaneous
  Country: US (occurrence: US)
  Receive Date: 20230104
  Receipt Date: 20230104
  Transmission Date: 20230417
  Serious: No
  Sender: FDA-Public Use
  Company Number: US-JNJFOC-20221259089

PATIENT
  Age: 54 Year
  Sex: Female

DRUGS (1)
  1. WOMENS ROGAINE UNSCENTED [Suspect]
     Active Substance: MINOXIDIL
     Indication: Alopecia
     Dosage: LESS THAN 1/2 CAPFUL EVERY NIGHT
     Route: 061
     Dates: start: 202212

REACTIONS (3)
  - Application site eczema [Recovering/Resolving]
  - Application site irritation [Recovering/Resolving]
  - Underdose [Unknown]

NARRATIVE: CASE EVENT DATE: 20221201
